FAERS Safety Report 6975695-9 (Version None)
Quarter: 2010Q3

REPORT INFORMATION
  Report Type: 
  Country: None (occurrence: None)
  Receive Date: 20100910
  Receipt Date: 20090421
  Transmission Date: 20110219
  Serious: No
  Sender: FDA-Public Use
  Company Number: US-WYE-H08744109

PATIENT
  Age: 51 Year
  Sex: Female
  Weight: 59.02 kg

DRUGS (6)
  1. PRISTIQ [Suspect]
     Indication: DEPRESSION
     Route: 048
     Dates: start: 20090301
  2. TOPROL-XL [Concomitant]
  3. LEXAPRO [Suspect]
     Dates: end: 20090301
  4. LEXAPRO [Suspect]
     Dates: start: 20090301, end: 20090301
  5. TAMOXIFEN CITRATE [Concomitant]
  6. PLAQUENIL [Concomitant]

REACTIONS (8)
  - ANXIETY [None]
  - DIZZINESS [None]
  - FEELING OF BODY TEMPERATURE CHANGE [None]
  - HOT FLUSH [None]
  - HYPERHIDROSIS [None]
  - MIDDLE INSOMNIA [None]
  - NAUSEA [None]
  - SLEEP DISORDER [None]
